FAERS Safety Report 21379217 (Version 2)
Quarter: 2022Q4

REPORT INFORMATION
  Report Type: Spontaneous
  Country: DE (occurrence: DE)
  Receive Date: 20220927
  Receipt Date: 20221017
  Transmission Date: 20230113
  Serious: Yes (Death, Life-Threatening, Other)
  Sender: FDA-Public Use
  Company Number: DE-BRISTOL-MYERS SQUIBB COMPANY-2022-109258

PATIENT
  Sex: Male
  Weight: 58 kg

DRUGS (14)
  1. OPDIVO [Suspect]
     Active Substance: NIVOLUMAB
     Indication: Malignant melanoma stage III
     Route: 042
     Dates: start: 20220826
  2. RAMIPRIL [Concomitant]
     Active Substance: RAMIPRIL
     Indication: Product used for unknown indication
     Dosage: 1-0-0-0
     Route: 065
  3. BISOPROLOL FUMARATE [Concomitant]
     Active Substance: BISOPROLOL FUMARATE
     Indication: Product used for unknown indication
     Dosage: 1-0-1-0
     Route: 065
  4. ATORVASTATIN [Concomitant]
     Active Substance: ATORVASTATIN
     Indication: Product used for unknown indication
     Dosage: 0-0-1-0
     Route: 065
  5. METFORMIN HYDROCHLORIDE [Concomitant]
     Active Substance: METFORMIN HYDROCHLORIDE
     Indication: Product used for unknown indication
     Dosage: 1-0-1-0 PAUSED
     Route: 065
  6. L?Thyroxin Henning [Concomitant]
     Indication: Product used for unknown indication
     Dosage: 1-0-0-0-0
     Route: 065
  7. METAMIZOLE [Concomitant]
     Active Substance: METAMIZOLE
     Indication: Product used for unknown indication
     Dosage: 40-40-40-40
     Route: 065
  8. CALCIUM D3 STADA [Concomitant]
     Indication: Product used for unknown indication
     Dosage: 600MG/400(IU)1?0?1?0
     Route: 065
  9. ASPIRIN [Concomitant]
     Active Substance: ASPIRIN
     Indication: Product used for unknown indication
     Dosage: 1-0-0-0-0
     Route: 065
  10. PROTAPHANE [Concomitant]
     Active Substance: INSULIN HUMAN
     Indication: Product used for unknown indication
     Dosage: 100(IU)/ML0?0?0?6(IU)
     Route: 065
  11. NOVORAPID [Concomitant]
     Active Substance: INSULIN ASPART
     Indication: Product used for unknown indication
     Dosage: 100U/ML(DOSAGE NOT SPECIFIED)
     Route: 065
  12. ENOXAPARIN SODIUM [Concomitant]
     Active Substance: ENOXAPARIN SODIUM
     Indication: Product used for unknown indication
     Dosage: 40MG(0.4ML)ONEAT5:00PM
     Route: 065
  13. Jonosteril [Concomitant]
     Indication: Product used for unknown indication
     Dosage: 500ML125ML/
     Route: 065
  14. METHYLPREDNISOLONE SODIUM SUCCINATE [Concomitant]
     Active Substance: METHYLPREDNISOLONE SODIUM SUCCINATE
     Indication: Product used for unknown indication
     Dosage: 15.78MG/ML120MGAT8:00AM
     Route: 065

REACTIONS (10)
  - Hepatitis [Recovering/Resolving]
  - Myocarditis [Fatal]
  - Myasthenia gravis [Recovering/Resolving]
  - Myositis [Recovering/Resolving]
  - Aortic thrombosis [Fatal]
  - Endocarditis [Fatal]
  - Peripheral artery occlusion [Fatal]
  - Pneumothorax [Fatal]
  - Splenic infarction [Fatal]
  - Renal infarct [Fatal]

NARRATIVE: CASE EVENT DATE: 20220913
